FAERS Safety Report 9177243 (Version 1)
Quarter: 2013Q1

REPORT INFORMATION
  Report Type: Spontaneous
  Country: FR (occurrence: None)
  Receive Date: 20130319
  Receipt Date: 20130319
  Transmission Date: 20140127
  Serious: Yes (Hospitalization)
  Sender: FDA-Public Use
  Company Number: 2012000302

PATIENT
  Age: 69 Year
  Sex: Male

DRUGS (2)
  1. ACEON (PERINDOPRIL ERBUMIN) TABLET, 5MG [Suspect]
     Indication: CEREBROVASCULAR ACCIDENT
     Route: 048
  2. FLUDEX (INDAPAMIDE) 1.5MG [Suspect]
     Route: 048
     Dates: end: 20120621

REACTIONS (8)
  - Oedema peripheral [None]
  - Hypothyroidism [None]
  - Vitamin D deficiency [None]
  - Hyponatraemia [None]
  - Decreased appetite [None]
  - Asthenia [None]
  - Confusional state [None]
  - Fall [None]
